FAERS Safety Report 16420454 (Version 2)
Quarter: 2019Q3

REPORT INFORMATION
  Report Type: Spontaneous
  Country: JP (occurrence: JP)
  Receive Date: 20190612
  Receipt Date: 20190725
  Transmission Date: 20191004
  Serious: Yes (Hospitalization, Other)
  Sender: FDA-Public Use
  Company Number: JP-B.I. PHARMACEUTICALS,INC./RIDGEFIELD-2019-BI-025615

PATIENT
  Age: 64 Year
  Sex: Female

DRUGS (2)
  1. GILOTRIF [Suspect]
     Active Substance: AFATINIB
     Indication: LUNG ADENOCARCINOMA STAGE IV
     Route: 065
  2. GILOTRIF [Suspect]
     Active Substance: AFATINIB
     Route: 065

REACTIONS (5)
  - B-cell lymphoma [Recovering/Resolving]
  - Diarrhoea [Unknown]
  - Hepatosplenomegaly [Unknown]
  - Abdominal lymphadenopathy [Unknown]
  - Ascites [Unknown]
